FAERS Safety Report 24525353 (Version 1)
Quarter: 2024Q4

REPORT INFORMATION
  Report Type: Spontaneous
  Country: FR (occurrence: FR)
  Receive Date: 20241019
  Receipt Date: 20241019
  Transmission Date: 20250114
  Serious: Yes (Other)
  Sender: AMGEN
  Company Number: FR-AMGEN-FRASP2024202013

PATIENT
  Age: 49 Year
  Sex: Female

DRUGS (4)
  1. ROMIPLOSTIM [Suspect]
     Active Substance: ROMIPLOSTIM
     Indication: Immune thrombocytopenia
     Dosage: UNK
     Route: 065
  2. RITUXIMAB [Concomitant]
     Active Substance: RITUXIMAB
  3. CORTICOSTEROID NOS [Concomitant]
     Active Substance: CORTICOSTEROID NOS
     Dosage: UNK
  4. ELTROMBOPAG [Concomitant]
     Active Substance: ELTROMBOPAG

REACTIONS (7)
  - Cell death [Recovered/Resolved]
  - Cholestasis [Unknown]
  - Splenomegaly [Unknown]
  - Hyperbilirubinaemia [Recovered/Resolved]
  - Interstitial lung disease [Unknown]
  - Therapeutic product effect incomplete [Unknown]
  - Lymphadenopathy [Unknown]
